FAERS Safety Report 7059978 (Version 10)
Quarter: 2012Q4

REPORT INFORMATION
  Report Type: 
  Country: CA (occurrence: CA)
  Receive Date: 20090723
  Receipt Date: 20121224
  Transmission Date: 20130627
  Serious: Yes (Hospitalization, Other)
  Sender: FDA-Public Use
  Company Number: PHHY2009CA29891

PATIENT
  Sex: Female

DRUGS (4)
  1. SANDOSTATIN [Suspect]
     Indication: ACROMEGALY
     Dosage: 50 ug, BID
     Route: 058
     Dates: start: 20090707
  2. SANDOSTATIN LAR [Suspect]
     Indication: ACROMEGALY
     Dosage: 20 mg, QMO
     Route: 030
     Dates: start: 20090724
  3. SANDOSTATIN LAR [Suspect]
     Dosage: 20 mg, Every 4 weeks
     Route: 030
  4. SANDOSTATIN LAR [Suspect]
     Dosage: 30 mg, QMO
     Route: 030

REACTIONS (10)
  - Cholelithiasis [Unknown]
  - Asthma [Unknown]
  - Bronchitis [Unknown]
  - Insomnia [Unknown]
  - Abdominal pain [Unknown]
  - Diarrhoea [Unknown]
  - Fatigue [Unknown]
  - Pain in extremity [Recovering/Resolving]
  - Arthralgia [Recovering/Resolving]
  - Malaise [Unknown]
